FAERS Safety Report 17117836 (Version 1)
Quarter: 2019Q4

REPORT INFORMATION
  Report Type: Spontaneous
  Country: CO (occurrence: CO)
  Receive Date: 20191205
  Receipt Date: 20191205
  Transmission Date: 20200122
  Serious: Yes (Other)
  Sender: FDA-Public Use
  Company Number: CO-NAPPMUNDI-GBR-2019-0073475

PATIENT
  Age: 88 Year
  Sex: Male

DRUGS (5)
  1. LOVASTATIN. [Concomitant]
     Active Substance: LOVASTATIN
     Dosage: UNK
  2. ENALAPRIL [Concomitant]
     Active Substance: ENALAPRIL
     Dosage: UNK
  3. BETAMETHASONE. [Concomitant]
     Active Substance: BETAMETHASONE
     Dosage: UNK
  4. NORSPAN [Suspect]
     Active Substance: BUPRENORPHINE
     Indication: LIGAMENT RUPTURE
     Dosage: 20 MCG, Q1H (STRENGTH 20 MG)
     Route: 062
     Dates: start: 20191115
  5. ASPIRIN. [Concomitant]
     Active Substance: ASPIRIN
     Dosage: UNK

REACTIONS (8)
  - Dehydration [Unknown]
  - Vomiting [Unknown]
  - Loss of consciousness [Unknown]
  - Delirium [Unknown]
  - Prescription drug used without a prescription [Unknown]
  - Dizziness [Not Recovered/Not Resolved]
  - Headache [Unknown]
  - Nausea [Not Recovered/Not Resolved]

NARRATIVE: CASE EVENT DATE: 201911
